FAERS Safety Report 8892184 (Version 1)
Quarter: 2012Q4

REPORT INFORMATION
  Report Type: Spontaneous
  Country: US (occurrence: None)
  Receive Date: 20121105
  Receipt Date: 20121105
  Transmission Date: 20130627
  Serious: Yes (Other)
  Sender: FDA-Public Use
  Company Number: None

PATIENT
  Age: 78 Year
  Sex: Female
  Weight: 64.41 kg

DRUGS (4)
  1. FENTANYL CITRATE [Suspect]
     Dosage: 1
     Route: 042
     Dates: start: 20120822, end: 20120822
  2. FENTANYL CITRATE [Suspect]
     Dosage: 1
     Route: 042
     Dates: start: 20120822, end: 20120822
  3. FENTANYL CITRATE [Suspect]
     Dosage: 1
     Route: 042
     Dates: start: 20120822, end: 20120822
  4. FENTANYL CITRATE [Suspect]
     Dosage: 1
     Route: 042
     Dates: start: 20120822, end: 20120822

REACTIONS (4)
  - Confusional state [None]
  - Visual impairment [None]
  - Mental impairment [None]
  - Disturbance in attention [None]
